FAERS Safety Report 13016996 (Version 1)
Quarter: 2016Q4

REPORT INFORMATION
  Report Type: Report from Study
  Country: US (occurrence: US)
  Receive Date: 20161212
  Receipt Date: 20161212
  Transmission Date: 20170207
  Serious: Yes (Death, Other)
  Sender: FDA-Public Use
  Company Number: PHEH2016US032124

PATIENT
  Age: 65 Year
  Sex: Female

DRUGS (1)
  1. VOTRIENT [Suspect]
     Active Substance: PAZOPANIB HYDROCHLORIDE
     Indication: BONE CANCER
     Dosage: 200 MG, UNK
     Route: 048
     Dates: start: 20161206

REACTIONS (3)
  - Death [Fatal]
  - Product use issue [Unknown]
  - Cerebrovascular accident [Unknown]

NARRATIVE: CASE EVENT DATE: 20161206
